FAERS Safety Report 5730951-7 (Version None)
Quarter: 2008Q2

REPORT INFORMATION
  Report Type: 
  Country: None (occurrence: None)
  Receive Date: 20080430
  Receipt Date: 20071212
  Transmission Date: 20081010
  Serious: No
  Sender: FDA-Public Use
  Company Number: 2007PV033837

PATIENT
  Sex: Male
  Weight: 122.4712 kg

DRUGS (3)
  1. SYMLIN [Suspect]
     Indication: TYPE 2 DIABETES MELLITUS
     Dosage: 25 UNITS;TID;SC ; SC
     Route: 058
     Dates: start: 20060201
  2. SYMLIN [Suspect]
     Indication: TYPE 2 DIABETES MELLITUS
     Dosage: 25 UNITS;TID;SC ; SC
     Route: 058
     Dates: start: 20071201
  3. BYETTA [Concomitant]

REACTIONS (4)
  - INCORRECT DOSE ADMINISTERED [None]
  - NAUSEA [None]
  - RETCHING [None]
  - WEIGHT INCREASED [None]
